FAERS Safety Report 8574225-8 (Version None)
Quarter: 2012Q3

REPORT INFORMATION
  Report Type: 
  Country: None (occurrence: None)
  Receive Date: 20120806
  Receipt Date: 20120727
  Transmission Date: 20120928
  Serious: Yes (Hospitalization)
  Sender: FDA-Public Use
  Company Number: NL-BAXTER-2012BAX011586

PATIENT
  Age: 65 Year
  Sex: Female

DRUGS (1)
  1. TISSEEL VH KIT [Suspect]
     Indication: WOUND CLOSURE
     Route: 061
     Dates: start: 20120618, end: 20120618

REACTIONS (1)
  - SEPSIS [None]
